FAERS Safety Report 19111459 (Version 1)
Quarter: 2021Q2

REPORT INFORMATION
  Report Type: Spontaneous
  Country: CN (occurrence: CN)
  Receive Date: 20210408
  Receipt Date: 20210408
  Transmission Date: 20210717
  Serious: Yes (Other)
  Sender: FDA-Public Use
  Company Number: CN-PFIZER INC-2021354301

PATIENT
  Sex: Female

DRUGS (1)
  1. METHOTREXATE SODIUM. [Suspect]
     Active Substance: METHOTREXATE SODIUM
     Indication: ECTOPIC PREGNANCY
     Dosage: UNK
     Route: 012

REACTIONS (6)
  - Product use issue [Unknown]
  - Inflammation [Unknown]
  - Drug effective for unapproved indication [Unknown]
  - Off label use [Unknown]
  - Mass [Unknown]
  - Haemorrhage [Unknown]
